FAERS Safety Report 8770384 (Version 1)
Quarter: 2012Q4

REPORT INFORMATION
  Report Type: 
  Country: DE (occurrence: DE)
  Receive Date: 20120906
  Receipt Date: 20120906
  Transmission Date: 20130627
  Serious: Yes (Death)
  Sender: FDA-Public Use
  Company Number: PHHY2012DE076193

PATIENT

DRUGS (4)
  1. CICLOSPORIN [Suspect]
     Indication: RENAL TRANSPLANT
  2. BASILIXIMAB [Suspect]
     Indication: RENAL TRANSPLANT
  3. PREDNISONE [Suspect]
     Indication: RENAL TRANSPLANT
  4. MYCOPHENOLATE MOFETIL [Suspect]
     Indication: RENAL TRANSPLANT

REACTIONS (3)
  - Septic shock [Fatal]
  - Necrotising fasciitis [Fatal]
  - Sepsis [Fatal]
